FAERS Safety Report 7289999-6 (Version None)
Quarter: 2011Q1

REPORT INFORMATION
  Report Type: 
  Country: None (occurrence: None)
  Receive Date: 20110209
  Receipt Date: 20110209
  Transmission Date: 20110831
  Serious: Yes (Other)
  Sender: FDA-Public Use
  Company Number: None

PATIENT
  Sex: Male
  Weight: 63.5036 kg

DRUGS (3)
  1. LUVOX CR [Suspect]
     Indication: ANXIETY
     Dosage: 100
  2. LUVOX CR [Suspect]
     Indication: PANIC ATTACK
     Dosage: 100
  3. XANAX [Concomitant]

REACTIONS (4)
  - DEPRESSION [None]
  - INSOMNIA [None]
  - DISTURBANCE IN ATTENTION [None]
  - EPISTAXIS [None]
